FAERS Safety Report 11869357 (Version 1)
Quarter: 2015Q4

REPORT INFORMATION
  Report Type: Spontaneous
  Country: None (occurrence: US)
  Receive Date: 20151226
  Receipt Date: 20151226
  Transmission Date: 20160305
  Serious: Yes (Other)
  Sender: FDA-Public Use
  Company Number: US-GUERBET LLC-1045897

PATIENT
  Sex: Male

DRUGS (1)
  1. OXILAN [Suspect]
     Active Substance: IOXILAN
     Dates: start: 20100901, end: 20100901

REACTIONS (1)
  - Anaphylactic reaction [Recovered/Resolved]

NARRATIVE: CASE EVENT DATE: 20100901
